FAERS Safety Report 5460411-2 (Version None)
Quarter: 2007Q3

REPORT INFORMATION
  Report Type: 
  Country: None (occurrence: None)
  Receive Date: 20070919
  Receipt Date: 20070709
  Transmission Date: 20080115
  Serious: Yes (Other)
  Sender: FDA-Public Use
  Company Number: US-ASTRAZENECA-2007UW16183

PATIENT
  Age: 7 Year
  Sex: Male

DRUGS (3)
  1. SEROQUEL [Suspect]
     Route: 048
     Dates: start: 20070703, end: 20070701
  2. RISPERDAL [Concomitant]
     Dates: start: 20070701, end: 20070702
  3. ZYPREXA [Concomitant]

REACTIONS (1)
  - DYSTONIA [None]
